FAERS Safety Report 17565998 (Version 1)
Quarter: 2020Q1

REPORT INFORMATION
  Report Type: Spontaneous
  Country: US (occurrence: US)
  Receive Date: 20200320
  Receipt Date: 20200320
  Transmission Date: 20200409
  Serious: Yes (Hospitalization)
  Sender: FDA-Public Use
  Company Number: None

PATIENT
  Age: 82 Year
  Sex: Male
  Weight: 89.36 kg

DRUGS (14)
  1. ELIGARD 7.5MG [Concomitant]
  2. VITAMIN A AND D 8000-400 MG [Concomitant]
  3. \FITAMIN C ER 1000 MG [Concomitant]
  4. VYTORIN 10 - 40 MG [Concomitant]
  5. VITAMIN D3 1000 U [Concomitant]
  6. ERLEADA [Suspect]
     Active Substance: APALUTAMIDE
     Indication: PROSTATE CANCER
     Route: 048
     Dates: start: 20190823
  7. BUSPIRONE 10MG [Concomitant]
  8. VITAMIN B 12 50 MCG [Concomitant]
  9. OMEPRAZOLE 40 MG [Concomitant]
     Active Substance: OMEPRAZOLE
  10. PAXIL [Concomitant]
     Active Substance: PAROXETINE HYDROCHLORIDE
  11. SYNTHROID [Concomitant]
     Active Substance: LEVOTHYROXINE SODIUM
  12. METOPROLOL SUCCINATE ER 50 MG [Concomitant]
     Active Substance: METOPROLOL SUCCINATE
  13. TAMSULOSIN 0.4 MG [Concomitant]
     Active Substance: TAMSULOSIN
  14. ASPIRIN 81 MG [Concomitant]
     Active Substance: ASPIRIN

REACTIONS (2)
  - Dehydration [None]
  - Feeling abnormal [None]

NARRATIVE: CASE EVENT DATE: 20200320
